FAERS Safety Report 6089606-4 (Version None)
Quarter: 2009Q1

REPORT INFORMATION
  Report Type: 
  Country: None (occurrence: None)
  Receive Date: 20090224
  Receipt Date: 20090218
  Transmission Date: 20090719
  Serious: Yes (Hospitalization)
  Sender: FDA-Public Use
  Company Number: PHEH2009US01867

PATIENT
  Sex: Female

DRUGS (2)
  1. TEKTURNA [Suspect]
     Dosage: 150MG, UNK
  2. DIOVAN HCT [Suspect]
     Dosage: 160 / 25 MG, UNK

REACTIONS (2)
  - CHEST PAIN [None]
  - EXPIRED DRUG ADMINISTERED [None]
